FAERS Safety Report 5050498-3 (Version None)
Quarter: 2006Q3

REPORT INFORMATION
  Report Type: 
  Country: None (occurrence: None)
  Receive Date: 20060713
  Receipt Date: 20060609
  Transmission Date: 20061208
  Serious: Yes (Other)
  Sender: FDA-Public Use
  Company Number: SE-ROCHE-454279

PATIENT
  Age: 18 Year
  Sex: Male

DRUGS (1)
  1. ROACCUTAN [Suspect]
     Indication: ACNE
     Route: 048
     Dates: start: 20051124, end: 20060321

REACTIONS (1)
  - ANGIONEUROTIC OEDEMA [None]
